FAERS Safety Report 5124216-4 (Version None)
Quarter: 2006Q4

REPORT INFORMATION
  Report Type: 
  Country: None (occurrence: None)
  Receive Date: 20061010
  Receipt Date: 20050609
  Transmission Date: 20070319
  Serious: Yes (Life-Threatening, Hospitalization)
  Sender: FDA-Public Use
  Company Number: US-JNJFOC-20061001779

PATIENT
  Sex: Female
  Weight: 86.36 kg

DRUGS (8)
  1. REOPRO [Suspect]
     Indication: PROPHYLAXIS
  2. ASPIRIN [Concomitant]
     Indication: CORONARY ARTERY DISEASE
  3. ATORVASTATIN CALCIUM [Concomitant]
     Indication: BLOOD CHOLESTEROL INCREASED
  4. METOPROLOL TARTRATE [Concomitant]
     Indication: MYOCARDIAL INFARCTION
  5. LISINOPRIL [Concomitant]
     Indication: MYOCARDIAL INFARCTION
  6. ATROPINE [Concomitant]
     Indication: ATRIOVENTRICULAR BLOCK
  7. NITROGLYCERIN [Concomitant]
     Indication: PROPHYLAXIS
  8. HEPARIN [Concomitant]
     Indication: ANTICOAGULANT THERAPY

REACTIONS (2)
  - ANGINA PECTORIS [None]
  - VENTRICULAR FIBRILLATION [None]
